FAERS Safety Report 8339608-X (Version None)
Quarter: 2012Q2

REPORT INFORMATION
  Report Type: 
  Country: None (occurrence: None)
  Receive Date: 20120507
  Receipt Date: 20120502
  Transmission Date: 20120825
  Serious: Yes (Hospitalization)
  Sender: FDA-Public Use
  Company Number: PHHY2012NL031897

PATIENT
  Sex: Male

DRUGS (5)
  1. ZOMETA [Suspect]
     Dosage: 4 MG/100 ML SOLUTION FOR IV INFUSION 1X PER 42 DAYS
     Route: 042
     Dates: start: 20120126
  2. ZOMETA [Suspect]
     Dosage: 4 MG/100 ML SOLUTION FOR IV INFUSION 1X PER 42 DAYS
     Route: 042
     Dates: start: 20120309, end: 20120309
  3. ZOMETA [Suspect]
     Indication: PROSTATE CANCER METASTATIC
     Dosage: 4 MG/100 ML SOLUTION FOR IV INFUSION 1X PER 42 DAYS
     Route: 042
  4. ZOMETA [Suspect]
     Dosage: 4 MG/100 ML SOLUTION FOR IV INFUSION 1X PER 42 DAYS
     Route: 042
     Dates: end: 20120412
  5. CHEMOTHERAPEUTICS [Concomitant]

REACTIONS (3)
  - BACTERIAL INFECTION [None]
  - STAPHYLOCOCCAL BACTERAEMIA [None]
  - WOUND [None]
